FAERS Safety Report 11230387 (Version 1)
Quarter: 2015Q2

REPORT INFORMATION
  Report Type: Spontaneous
  Country: US (occurrence: None)
  Receive Date: 20150629
  Receipt Date: 20150629
  Transmission Date: 20150821
  Serious: No
  Sender: FDA-Public Use
  Company Number: None

PATIENT

DRUGS (2)
  1. TOBRADEX [Suspect]
     Active Substance: DEXAMETHASONE\TOBRAMYCIN
  2. TOBREX [Suspect]
     Active Substance: TOBRAMYCIN
     Dosage: EYE DROPS
     Route: 031

REACTIONS (2)
  - Product name confusion [None]
  - Intercepted drug dispensing error [None]
